FAERS Safety Report 9653397 (Version 1)
Quarter: 2013Q4

REPORT INFORMATION
  Report Type: Spontaneous
  Country: US (occurrence: None)
  Receive Date: 20131028
  Receipt Date: 20131028
  Transmission Date: 20140711
  Serious: Yes (Other)
  Sender: FDA-Public Use
  Company Number: 2013P1020012

PATIENT
  Age: 21 Year
  Sex: Female

DRUGS (7)
  1. MYORISAN [Suspect]
     Indication: ACNE
     Dates: start: 20130905, end: 20131007
  2. CLARAVIS [Suspect]
     Indication: ACNE
     Dates: start: 20130627, end: 201309
  3. ORAL CONTRACEPTIVES [Concomitant]
  4. ZYRTEC [Concomitant]
  5. FLONASE [Concomitant]
  6. ROBINUL [Concomitant]
  7. MUCINEX D [Concomitant]

REACTIONS (5)
  - Feeling abnormal [None]
  - Dry skin [None]
  - Suicidal ideation [None]
  - Mood altered [None]
  - Therapy cessation [None]
